FAERS Safety Report 4907743-1 (Version None)
Quarter: 2006Q1

REPORT INFORMATION
  Report Type: 
  Country: None (occurrence: None)
  Receive Date: 20060208
  Receipt Date: 20060208
  Transmission Date: 20060701
  Serious: Yes (Other)
  Sender: FDA-Public Use
  Company Number: None

PATIENT
  Age: 82 Year
  Sex: Male
  Weight: 63.1 kg

DRUGS (1)
  1. METRONIDAZOLE [Suspect]

REACTIONS (2)
  - CONFUSIONAL STATE [None]
  - DELIRIUM [None]
